FAERS Safety Report 12387678 (Version 2)
Quarter: 2018Q4

REPORT INFORMATION
  Report Type: Report from Study
  Country: US (occurrence: US)
  Receive Date: 20160520
  Receipt Date: 20181116
  Transmission Date: 20190204
  Serious: Yes (Other)
  Sender: FDA-Public Use
  Company Number: US-ROCHE-1340328

PATIENT
  Age: 6 Year
  Sex: Male
  Weight: 48 kg

DRUGS (5)
  1. NUTROPIN AQ [Suspect]
     Active Substance: SOMATROPIN
     Indication: GROWTH HORMONE DEFICIENCY
     Dosage: 7 DAYS A WEEK
     Route: 058
     Dates: start: 20140124
  2. NUTROPIN AQ [Suspect]
     Active Substance: SOMATROPIN
     Route: 058
  3. FISH OIL [Concomitant]
     Active Substance: FISH OIL
     Route: 048
  4. NUTROPIN AQ [Suspect]
     Active Substance: SOMATROPIN
     Route: 058
     Dates: start: 20140124
  5. VITAMIN D3 [Concomitant]
     Active Substance: CHOLECALCIFEROL
     Dosage: 100 UNIT
     Route: 048

REACTIONS (8)
  - Headache [Recovered/Resolved]
  - Blindness [Unknown]
  - Vomiting [Recovered/Resolved]
  - Overweight [Unknown]
  - Injection site pain [Not Recovered/Not Resolved]
  - Foot fracture [Recovered/Resolved]
  - Vomiting [Recovered/Resolved]
  - Headache [Unknown]

NARRATIVE: CASE EVENT DATE: 20140124
